FAERS Safety Report 5590389-2 (Version None)
Quarter: 2008Q1

REPORT INFORMATION
  Report Type: 
  Country: None (occurrence: None)
  Receive Date: 20080114
  Receipt Date: 20071217
  Transmission Date: 20080703
  Serious: No
  Sender: FDA-Public Use
  Company Number: US-BOEHRINGER INGELHEIM PHARMACEUTICALS, INC.-2007-BP-26334BP

PATIENT
  Sex: Female

DRUGS (20)
  1. ATROVENT HFA [Suspect]
     Indication: EMPHYSEMA
     Route: 055
  2. ADVAIR DISKUS 100/50 [Concomitant]
     Indication: EMPHYSEMA
  3. SPIRIVA [Concomitant]
     Indication: EMPHYSEMA
     Route: 055
  4. OXYGEN [Concomitant]
     Indication: EMPHYSEMA
  5. ACCUPRIL [Concomitant]
  6. ZETIA [Concomitant]
  7. NEXIUM [Concomitant]
  8. ATIVAN [Concomitant]
  9. NEURONTIN [Concomitant]
  10. LASIX [Concomitant]
  11. POT CHLORIDE [Concomitant]
  12. ALBUTEROL SULFATE [Concomitant]
  13. ASPIRIN [Concomitant]
  14. ALBUTEROL [Concomitant]
  15. PREMARIN [Concomitant]
  16. DILTIAZEM CD [Concomitant]
  17. DIGOXIN [Concomitant]
  18. COREG [Concomitant]
  19. COUMADIN [Concomitant]
  20. PESSARY [Concomitant]
     Indication: URINARY INCONTINENCE

REACTIONS (2)
  - DRUG EFFECT DECREASED [None]
  - DRUG INEFFECTIVE [None]
